FAERS Safety Report 25040407 (Version 2)
Quarter: 2025Q2

REPORT INFORMATION
  Report Type: Spontaneous
  Country: CH (occurrence: CH)
  Receive Date: 20250305
  Receipt Date: 20250528
  Transmission Date: 20250716
  Serious: Yes (Other)
  Sender: JOHNSON AND JOHNSON
  Company Number: CH-JNJFOC-20250267668

PATIENT
  Sex: Female

DRUGS (2)
  1. STELARA [Suspect]
     Active Substance: USTEKINUMAB
     Indication: Crohn^s disease
     Route: 058
  2. STELARA [Suspect]
     Active Substance: USTEKINUMAB
     Indication: Spondylitis

REACTIONS (4)
  - Crohn^s disease [Recovering/Resolving]
  - Deep vein thrombosis [Unknown]
  - Fluid retention [Unknown]
  - Limb discomfort [Unknown]
